FAERS Safety Report 5266627-2 (Version None)
Quarter: 2007Q1

REPORT INFORMATION
  Report Type: 
  Country: None (occurrence: None)
  Receive Date: 20070312
  Receipt Date: 20070226
  Transmission Date: 20070707
  Serious: Yes (Other)
  Sender: FDA-Public Use
  Company Number: 236460

PATIENT
  Age: 20 Year
  Sex: Female
  Weight: 88 kg

DRUGS (9)
  1. XOLAIR [Suspect]
     Indication: ASTHMA
     Dosage: SEE IMAGE
     Route: 058
     Dates: start: 20061219, end: 20061219
  2. XOLAIR [Suspect]
     Indication: ASTHMA
     Dosage: SEE IMAGE
     Route: 058
     Dates: start: 20061219, end: 20061219
  3. PREDNISONE TAB [Concomitant]
  4. ANTIHISTAMINE (UNK INGREDIENTS) (ANTIHISTAMINE NOS) [Concomitant]
  5. SYMBICORT [Concomitant]
  6. PANTOPRAZOLE SODIUM [Concomitant]
  7. DOMPERIDONE (DOMPERIDONE) [Concomitant]
  8. TERBUTALINE SULFATE [Concomitant]
  9. ATROVENT [Concomitant]

REACTIONS (3)
  - HYPERSENSITIVITY [None]
  - LOCALISED OEDEMA [None]
  - PHARYNGEAL OEDEMA [None]
